FAERS Safety Report 4391271-9 (Version None)
Quarter: 2004Q2

REPORT INFORMATION
  Report Type: 
  Country: None (occurrence: None)
  Receive Date: 20040621
  Receipt Date: 20040401
  Transmission Date: 20050107
  Serious: Yes (Other)
  Sender: FDA-Public Use
  Company Number: USA-2002-0001037

PATIENT
  Age: 42 Year
  Sex: Female
  Weight: 103.4 kg

DRUGS (18)
  1. OXYCONTIN [Suspect]
     Indication: PAIN
     Dosage: 10 MG, SEE TEXT, ORAL
     Route: 048
  2. OXYCODONE HCL [Suspect]
     Indication: PAIN
     Dosage: 5 MG, QID, ORAL
     Route: 048
     Dates: start: 20010803
  3. DEMEROL [Concomitant]
  4. LORCET-HD [Concomitant]
  5. XANAX [Concomitant]
  6. DOXEPIN HCL [Concomitant]
  7. TEMAZEPAM [Concomitant]
  8. AMBIEN [Concomitant]
  9. BUSPAR [Concomitant]
  10. REMERON [Concomitant]
  11. MOTRIN [Concomitant]
  12. ELAVIL [Concomitant]
  13. ZYPREXA [Concomitant]
  14. COUGH SYRUP [Concomitant]
  15. ZITHROMAX [Concomitant]
  16. PHENERGAN FORTIS [Concomitant]
  17. AMOXICILLIN [Concomitant]
  18. NEOSPORIN OPHTHALMIC OINTMENT [Concomitant]

REACTIONS (11)
  - AFFECT LABILITY [None]
  - BRONCHITIS [None]
  - COUGH [None]
  - DEPRESSION [None]
  - DRUG DEPENDENCE [None]
  - DRUG WITHDRAWAL SYNDROME [None]
  - INSOMNIA [None]
  - PAIN [None]
  - PRURITUS [None]
  - RHINITIS [None]
  - UPPER RESPIRATORY TRACT INFECTION [None]
